FAERS Safety Report 16006800 (Version 1)
Quarter: 2019Q1

REPORT INFORMATION
  Report Type: Report from Study
  Country: US (occurrence: US)
  Receive Date: 20190226
  Receipt Date: 20190226
  Transmission Date: 20190418
  Serious: Yes (Hospitalization)
  Sender: FDA-Public Use
  Company Number: US-SA-2018SA024029

PATIENT
  Age: 59 Year
  Sex: Female
  Weight: 80 kg

DRUGS (5)
  1. INSULIN GLARGINE [Suspect]
     Active Substance: INSULIN GLARGINE
     Indication: TYPE 2 DIABETES MELLITUS
     Dosage: 30 U,QD
     Route: 058
     Dates: start: 201711
  2. INSULIN GLARGINE [Suspect]
     Active Substance: INSULIN GLARGINE
     Dosage: 30 U, ONCE OR TWICE DAILY
     Route: 058
  3. EFFEXOR [Concomitant]
     Active Substance: VENLAFAXINE HYDROCHLORIDE
     Dosage: UNK
  4. METAXALONE. [Concomitant]
     Active Substance: METAXALONE
     Dosage: UNK
  5. APIDRA [Concomitant]
     Active Substance: INSULIN GLULISINE
     Indication: TYPE 2 DIABETES MELLITUS
     Dosage: 20 IU, BID
     Route: 058
     Dates: start: 2018

REACTIONS (11)
  - Hypoaesthesia [Recovering/Resolving]
  - Diabetic neuropathy [Recovered/Resolved]
  - Gait disturbance [Recovered/Resolved]
  - Stress [Not Recovered/Not Resolved]
  - Appendicitis perforated [Recovered/Resolved]
  - Unevaluable event [Recovered/Resolved]
  - Hypoaesthesia [Unknown]
  - Fall [Unknown]
  - Inappropriate schedule of product administration [Unknown]
  - Blood glucose increased [Recovered/Resolved]
  - Grip strength decreased [Not Recovered/Not Resolved]

NARRATIVE: CASE EVENT DATE: 20170118
